FAERS Safety Report 8508498 (Version 2)
Quarter: 2012Q4

REPORT INFORMATION
  Report Type: 
  Country: US (occurrence: US)
  Receive Date: 20120412
  Receipt Date: 20121204
  Transmission Date: 20130627
  Serious: No
  Sender: FDA-Public Use
  Company Number: US-ASTRAZENECA-2011SE55777

PATIENT
  Age: 68 Year
  Sex: Male
  Weight: 83.5 kg

DRUGS (2)
  1. NEXIUM [Suspect]
     Indication: GASTROOESOPHAGEAL REFLUX DISEASE
     Route: 048
  2. PENTASA [Concomitant]
     Indication: GASTRIC DISORDER

REACTIONS (4)
  - Heart rate increased [Unknown]
  - Electrocardiogram abnormal [Unknown]
  - Dysphonia [Unknown]
  - Dry throat [Unknown]
